FAERS Safety Report 6682047-8 (Version None)
Quarter: 2010Q2

REPORT INFORMATION
  Report Type: 
  Country: None (occurrence: None)
  Receive Date: 20100415
  Receipt Date: 20100412
  Transmission Date: 20101027
  Serious: Yes (Death)
  Sender: FDA-Public Use
  Company Number: US-ASTRAZENECA-2009SE15027

PATIENT
  Age: 43 Year
  Sex: Male

DRUGS (3)
  1. SEROQUEL [Suspect]
     Route: 048
     Dates: start: 20020101
  2. LEXAPRO [Concomitant]
     Dates: start: 20020101
  3. VALIUM [Concomitant]
     Dosage: 1-2 THRICE IN A DAY

REACTIONS (2)
  - DIABETES MELLITUS [None]
  - HYPERTENSION [None]
